FAERS Safety Report 6678904-9 (Version None)
Quarter: 2010Q2

REPORT INFORMATION
  Report Type: 
  Country: None (occurrence: None)
  Receive Date: 20100412
  Receipt Date: 20100412
  Transmission Date: 20101027
  Serious: Yes (Disabling)
  Sender: FDA-Public Use
  Company Number: None

PATIENT
  Sex: Male
  Weight: 195.0467 kg

DRUGS (1)
  1. ZETIA [Suspect]
     Indication: HIGH DENSITY LIPOPROTEIN DECREASED
     Dosage: 1 TABLET DAILY PO
     Route: 048
     Dates: start: 20100401, end: 20100408

REACTIONS (2)
  - DYSPEPSIA [None]
  - GASTRITIS [None]
